FAERS Safety Report 15918858 (Version 3)
Quarter: 2019Q2

REPORT INFORMATION
  Report Type: Spontaneous
  Country: PL (occurrence: PL)
  Receive Date: 20190205
  Receipt Date: 20190401
  Transmission Date: 20190711
  Serious: Yes (Other)
  Sender: FDA-Public Use
  Company Number: PL-BAUSCH-BL-2018-013327

PATIENT
  Age: 57 Year
  Sex: Male
  Weight: 86 kg

DRUGS (18)
  1. DULOXETINE. [Concomitant]
     Active Substance: DULOXETINE
     Indication: PRODUCT USED FOR UNKNOWN INDICATION
  2. PARACETAMOL [Concomitant]
     Active Substance: ACETAMINOPHEN
     Indication: PRODUCT USED FOR UNKNOWN INDICATION
  3. MIANSERIN [Interacting]
     Active Substance: MIANSERIN
     Indication: INSOMNIA
     Dosage: HALF AN HOUR BEFORE BED
     Route: 065
  4. TRAZODONE [Concomitant]
     Active Substance: TRAZODONE HYDROCHLORIDE
     Indication: PRODUCT USED FOR UNKNOWN INDICATION
  5. SIMVASTATIN. [Concomitant]
     Active Substance: SIMVASTATIN
     Indication: PRODUCT USED FOR UNKNOWN INDICATION
  6. ZOLPIDEM [Interacting]
     Active Substance: ZOLPIDEM\ZOLPIDEM TARTRATE
     Indication: SLEEP DISORDER
     Dosage: BEFORE BED
     Route: 048
     Dates: start: 20171122, end: 20171124
  7. DEPREXETIN [Suspect]
     Active Substance: FLUOXETINE HYDROCHLORIDE
     Indication: FIBROMYALGIA
     Route: 048
     Dates: start: 20171103, end: 20171122
  8. ZOFENIL [Concomitant]
     Active Substance: ZOFENOPRIL
     Indication: PRODUCT USED FOR UNKNOWN INDICATION
  9. FLUOXETINE [Interacting]
     Active Substance: FLUOXETINE HYDROCHLORIDE
     Indication: DIABETES MELLITUS
     Route: 065
  10. BISOCARD [Concomitant]
     Active Substance: BISOPROLOL
     Indication: PRODUCT USED FOR UNKNOWN INDICATION
  11. DIAZEPAM. [Suspect]
     Active Substance: DIAZEPAM
     Indication: NIGHTMARE
     Dosage: BEFORE BED
     Route: 065
  12. METFORMIN [Concomitant]
     Active Substance: METFORMIN HYDROCHLORIDE
     Indication: PRODUCT USED FOR UNKNOWN INDICATION
  13. DEPREXETIN [Suspect]
     Active Substance: FLUOXETINE HYDROCHLORIDE
     Indication: DIABETES MELLITUS
  14. DIAZEPAM. [Interacting]
     Active Substance: DIAZEPAM
     Indication: INITIAL INSOMNIA
  15. ZOLPIDEM [Interacting]
     Active Substance: ZOLPIDEM\ZOLPIDEM TARTRATE
     Indication: INSOMNIA
     Dosage: AFTER TWICE ADMINISTRATION OF THIS MEDICINE THE PATIENT DISCONTINUED
     Route: 065
  16. ZOLPIDEM [Interacting]
     Active Substance: ZOLPIDEM\ZOLPIDEM TARTRATE
     Indication: FIBROMYALGIA
  17. ZOLPIDEM [Interacting]
     Active Substance: ZOLPIDEM\ZOLPIDEM TARTRATE
     Indication: DIABETES MELLITUS
  18. FLUOXETINE [Interacting]
     Active Substance: FLUOXETINE HYDROCHLORIDE
     Indication: FIBROMYALGIA
     Dosage: IN THE MORNING AND IN THE EVENING
     Route: 065
     Dates: start: 20171103, end: 20171122

REACTIONS (10)
  - Off label use [Unknown]
  - Initial insomnia [Recovered/Resolved]
  - Drug interaction [Unknown]
  - Blood glucose fluctuation [Recovered/Resolved]
  - Nightmare [Recovering/Resolving]
  - Somnolence [Unknown]
  - Poor quality sleep [Recovered/Resolved]
  - Dry mouth [Unknown]
  - Abnormal dreams [Recovered/Resolved]
  - Sleep disorder [Recovered/Resolved]
